FAERS Safety Report 7418323-0 (Version None)
Quarter: 2011Q2

REPORT INFORMATION
  Report Type: 
  Country: None (occurrence: None)
  Receive Date: 20110415
  Receipt Date: 20110408
  Transmission Date: 20111010
  Serious: Yes (Other)
  Sender: FDA-Public Use
  Company Number: A0865910A

PATIENT
  Sex: Female
  Weight: 99.1 kg

DRUGS (15)
  1. ULTRAM [Concomitant]
  2. COLACE [Concomitant]
  3. PLAVIX [Concomitant]
  4. COUMADIN [Concomitant]
  5. WELLBUTRIN XL [Concomitant]
  6. ZETIA [Concomitant]
  7. AVANDIA [Suspect]
     Indication: DIABETES MELLITUS
     Route: 048
  8. GLUCOTROL XL [Concomitant]
  9. VICODIN ES [Concomitant]
  10. GLUCOPHAGE [Concomitant]
  11. DURAGESIC [Concomitant]
  12. LYRICA [Concomitant]
  13. REGLAN [Concomitant]
  14. ZELNORM [Concomitant]
  15. REQUIP [Concomitant]

REACTIONS (2)
  - MYOCARDIAL INFARCTION [None]
  - CEREBROVASCULAR ACCIDENT [None]
